FAERS Safety Report 6620380-6 (Version None)
Quarter: 2010Q1

REPORT INFORMATION
  Report Type: 
  Country: None (occurrence: None)
  Receive Date: 20100308
  Receipt Date: 20100308
  Transmission Date: 20100710
  Serious: Yes (Hospitalization)
  Sender: FDA-Public Use
  Company Number: None

PATIENT
  Sex: Male
  Weight: 60.5 kg

DRUGS (2)
  1. FLUOROURACIL [Suspect]
     Dosage: 5040 MG
  2. ELOXATIN [Suspect]
     Dosage: 153 MG

REACTIONS (2)
  - DIARRHOEA [None]
  - HYPOKALAEMIA [None]
